FAERS Safety Report 24610879 (Version 1)
Quarter: 2024Q4

REPORT INFORMATION
  Report Type: Spontaneous
  Country: KR (occurrence: KR)
  Receive Date: 20241112
  Receipt Date: 20241112
  Transmission Date: 20250114
  Serious: Yes (Other)
  Sender: COLLEGIUM PHARMACEUTICAL
  Company Number: KR-JNJFOC-20241069586

PATIENT
  Sex: Male
  Weight: 58 kg

DRUGS (2)
  1. NUCYNTA [Suspect]
     Active Substance: TAPENTADOL HYDROCHLORIDE
     Indication: Diabetic retinopathy
     Dosage: 1 DOSAGE FORM, TID
     Route: 065
     Dates: start: 20231201, end: 20231201
  2. FENTANYL [Concomitant]
     Active Substance: FENTANYL
     Indication: Diabetic retinopathy
     Dosage: 3 DOSAGE FORM, 1/DAY
     Route: 065
     Dates: start: 20231130, end: 20231201

REACTIONS (3)
  - Loss of consciousness [Recovered/Resolved]
  - Hypotension [Recovered/Resolved]
  - Off label use [Unknown]

NARRATIVE: CASE EVENT DATE: 20231201
